FAERS Safety Report 13484116 (Version 3)
Quarter: 2019Q1

REPORT INFORMATION
  Report Type: Spontaneous
  Country: GB (occurrence: GB)
  Receive Date: 20170426
  Receipt Date: 20190312
  Transmission Date: 20190417
  Serious: Yes (Disabling)
  Sender: FDA-Public Use
  Company Number: GB-ACCORD-050626

PATIENT
  Sex: Male

DRUGS (5)
  1. CARBAMAZEPINE. [Concomitant]
     Active Substance: CARBAMAZEPINE
  2. QUETIAPINE HEMIFUMARATE [Suspect]
     Active Substance: QUETIAPINE FUMARATE
  3. ACCORD HEALTHCARE QUETIAPINE [Suspect]
     Active Substance: QUETIAPINE FUMARATE
     Indication: PRODUCT USED FOR UNKNOWN INDICATION
     Dosage: INITIALLY 250 MG THEN INCREASED TO 450 MG AND THEN DECREASE TO 300 MG.
  4. MILPHARM QUETIAPINE [Suspect]
     Active Substance: QUETIAPINE FUMARATE
     Indication: PRODUCT USED FOR UNKNOWN INDICATION
  5. KRKA DD QUETIAPINE [Suspect]
     Active Substance: QUETIAPINE FUMARATE
     Indication: PRODUCT USED FOR UNKNOWN INDICATION

REACTIONS (13)
  - Nightmare [Unknown]
  - Insomnia [Unknown]
  - Condition aggravated [Unknown]
  - Fatigue [Unknown]
  - Balance disorder [Recovered/Resolved]
  - Product substitution issue [Unknown]
  - Disturbance in attention [Unknown]
  - Withdrawal syndrome [Unknown]
  - Disinhibition [Unknown]
  - Feeling abnormal [Unknown]
  - Agitation [Unknown]
  - Nausea [Recovered/Resolved]
  - Rebound psychosis [Unknown]

NARRATIVE: CASE EVENT DATE: 201701
